FAERS Safety Report 24451940 (Version 1)
Quarter: 2024Q4

REPORT INFORMATION
  Report Type: Spontaneous
  Country: US (occurrence: US)
  Receive Date: 20241017
  Receipt Date: 20241017
  Transmission Date: 20250114
  Serious: No
  Sender: GALDERMA
  Company Number: US-GALDERMA-US2024013117

PATIENT

DRUGS (1)
  1. DIFFERIN GEL [Suspect]
     Active Substance: ADAPALENE
     Indication: Acne
     Dosage: 1 DOSAGE FORM
     Route: 061

REACTIONS (4)
  - Skin exfoliation [Unknown]
  - Acne [Unknown]
  - Erythema [Unknown]
  - Skin irritation [Unknown]
